FAERS Safety Report 4970152-3 (Version None)
Quarter: 2006Q2

REPORT INFORMATION
  Report Type: 
  Country: None (occurrence: None)
  Receive Date: 20060406
  Receipt Date: 20060324
  Transmission Date: 20061013
  Serious: Yes (Other)
  Sender: FDA-Public Use
  Company Number: 2006042057

PATIENT
  Sex: Male
  Weight: 79.3795 kg

DRUGS (5)
  1. NEURONTIN [Suspect]
     Indication: AFFECT LABILITY
     Dosage: 1500 MG (1 D)
  2. CLOZAPINE [Suspect]
     Indication: ILL-DEFINED DISORDER
  3. ABILIFY [Suspect]
     Indication: ILL-DEFINED DISORDER
  4. LEXAPRO [Suspect]
     Indication: ILL-DEFINED DISORDER
  5. SEROQUEL [Concomitant]

REACTIONS (3)
  - BLADDER HYPERTROPHY [None]
  - CONDITION AGGRAVATED [None]
  - URINARY RETENTION [None]
